FAERS Safety Report 21850544 (Version 1)
Quarter: 2023Q1

REPORT INFORMATION
  Report Type: Spontaneous
  Country: CN (occurrence: CN)
  Receive Date: 20230111
  Receipt Date: 20230111
  Transmission Date: 20230417
  Serious: No
  Sender: FDA-Public Use
  Company Number: CN-ELI_LILLY_AND_COMPANY-CN202212009408

PATIENT
  Age: 31 Year
  Sex: Female
  Weight: 65 kg

DRUGS (2)
  1. CYMBALTA [Suspect]
     Active Substance: DULOXETINE HYDROCHLORIDE
     Indication: Sleep disorder
     Dosage: 30 MG, DAILY
     Route: 048
     Dates: start: 20221130, end: 20221130
  2. AGOMELATINE [Suspect]
     Active Substance: AGOMELATINE
     Indication: Sleep disorder
     Dosage: 25 MG, DAILY
     Route: 048
     Dates: start: 20221130, end: 20221202

REACTIONS (1)
  - Hepatic function abnormal [Unknown]

NARRATIVE: CASE EVENT DATE: 20221201
